FAERS Safety Report 7498596-9 (Version None)
Quarter: 2011Q2

REPORT INFORMATION
  Report Type: 
  Country: None (occurrence: None)
  Receive Date: 20110524
  Receipt Date: 20110429
  Transmission Date: 20111010
  Serious: Yes (Hospitalization, Other)
  Sender: FDA-Public Use
  Company Number: US-BAYER-2011-014180

PATIENT
  Age: 32 Year
  Sex: Female
  Weight: 58.957 kg

DRUGS (6)
  1. YAZ [Suspect]
     Indication: ACNE
     Dosage: UNK
     Dates: start: 20070329, end: 20091201
  2. DROSPIRENONE AND ETHINYL ESTRADIOL [Suspect]
     Indication: ACNE
     Dosage: UNK UNK, QD
     Dates: start: 20090329, end: 20091201
  3. YASMIN [Suspect]
     Indication: ACNE
     Dosage: UNK
     Dates: start: 20070329, end: 20091201
  4. SPRINTEC [Concomitant]
     Dosage: 0.25-35 MG/MCG
  5. DROSPIRENONE AND ETHINYL ESTRADIOL [Suspect]
     Indication: CONTRACEPTION
  6. PROSICA [Concomitant]
     Indication: CONTRACEPTION
     Dosage: UNK
     Dates: start: 20090201

REACTIONS (5)
  - INJURY [None]
  - PANCREATITIS [None]
  - CHOLECYSTITIS [None]
  - GALLBLADDER DISORDER [None]
  - PAIN [None]
